FAERS Safety Report 21267485 (Version 1)
Quarter: 2022Q3

REPORT INFORMATION
  Report Type: Spontaneous
  Country: US (occurrence: US)
  Receive Date: 20220829
  Receipt Date: 20220829
  Transmission Date: 20221026
  Serious: Yes (Hospitalization, Other)
  Sender: FDA-Public Use
  Company Number: US-BAYER-2022A120071

PATIENT
  Sex: Female

DRUGS (1)
  1. MIRENA [Suspect]
     Active Substance: LEVONORGESTREL
     Indication: Contraception
     Dosage: 20?G/DAY
     Route: 015
     Dates: start: 2020

REACTIONS (5)
  - Uterine perforation [None]
  - Genital haemorrhage [None]
  - Abdominal pain [None]
  - Pyrexia [None]
  - Vomiting [None]

NARRATIVE: CASE EVENT DATE: 20220801
